FAERS Safety Report 9086891 (Version 2)
Quarter: 2013Q1

REPORT INFORMATION
  Report Type: Spontaneous
  Country: AT (occurrence: AT)
  Receive Date: 20130217
  Receipt Date: 20130315
  Transmission Date: 20140127
  Serious: Yes (Other)
  Sender: FDA-Public Use
  Company Number: AT-JNJFOC-20130204101

PATIENT
  Age: 79 Year
  Sex: Female
  Weight: 40 kg

DRUGS (13)
  1. XARELTO [Suspect]
     Indication: THROMBOSIS PROPHYLAXIS
     Route: 048
     Dates: end: 20130130
  2. XARELTO [Suspect]
     Indication: HIP ARTHROPLASTY
     Route: 048
     Dates: end: 20130130
  3. NAPROBENE [Concomitant]
     Route: 065
  4. MEXALEN [Concomitant]
     Route: 065
  5. PANTOPRAZOLE SODIUM [Concomitant]
     Route: 065
  6. DANCOR [Concomitant]
     Route: 065
  7. MAGNOSOLV [Concomitant]
     Route: 065
  8. NOVALGIN [Concomitant]
     Route: 065
  9. THROMBO ASS [Concomitant]
     Route: 065
  10. LASIX RETARD [Concomitant]
     Route: 065
  11. REPARIL [Concomitant]
     Route: 065
     Dates: start: 20130126
  12. TRAMAL [Concomitant]
     Route: 065
  13. SOMNUBENE [Concomitant]
     Route: 065

REACTIONS (2)
  - Venous thrombosis limb [Not Recovered/Not Resolved]
  - Drug ineffective [Unknown]
